FAERS Safety Report 21246400 (Version 7)
Quarter: 2023Q2

REPORT INFORMATION
  Report Type: Report from Study
  Country: US (occurrence: US)
  Receive Date: 20220824
  Receipt Date: 20230529
  Transmission Date: 20230721
  Serious: No
  Sender: FDA-Public Use
  Company Number: US-NOVARTISTESTPH-NVSC2022US187350

PATIENT

DRUGS (1)
  1. COSENTYX [Suspect]
     Active Substance: SECUKINUMAB
     Indication: Ankylosing spondylitis
     Dosage: 150 MG (TREATMENT DISCONTINUED IN MAR 2023))
     Route: 065
     Dates: start: 202207

REACTIONS (3)
  - SARS-CoV-2 test positive [Unknown]
  - Sinusitis [Recovering/Resolving]
  - Drug ineffective [Unknown]
